FAERS Safety Report 9552414 (Version 1)
Quarter: 2013Q3

REPORT INFORMATION
  Report Type: Spontaneous
  Country: US (occurrence: None)
  Receive Date: 20130809
  Receipt Date: 20130809
  Transmission Date: 20140515
  Serious: Yes (Life-Threatening, Hospitalization, Other)
  Sender: FDA-Public Use
  Company Number: CPI 4390

PATIENT
  Age: 35 Year
  Sex: Female

DRUGS (1)
  1. CALDOLOR [Suspect]
     Indication: PROCEDURAL PAIN
     Route: 042
     Dates: start: 20130218

REACTIONS (2)
  - Infusion site pain [None]
  - Vein disorder [None]
